FAERS Safety Report 6110718-0 (Version None)
Quarter: 2009Q1

REPORT INFORMATION
  Report Type: 
  Country: None (occurrence: None)
  Receive Date: 20090309
  Receipt Date: 20090303
  Transmission Date: 20090719
  Serious: Yes (Hospitalization)
  Sender: FDA-Public Use
  Company Number: 2008AL002356

PATIENT
  Age: 56 Year
  Sex: Male
  Weight: 78.9259 kg

DRUGS (3)
  1. ETODOLAC [Suspect]
     Indication: ARTHRITIS
     Dosage: 400 MG, QD; PO
     Route: 048
     Dates: start: 20080228, end: 20080301
  2. VYTORIN [Concomitant]
  3. BENAZEPRIL HYDROCHLORIDE [Concomitant]

REACTIONS (6)
  - CHEST DISCOMFORT [None]
  - FLUID RETENTION [None]
  - JOINT SWELLING [None]
  - OEDEMA PERIPHERAL [None]
  - RENAL FAILURE ACUTE [None]
  - WEIGHT INCREASED [None]
